FAERS Safety Report 9872824 (Version 2)
Quarter: 2014Q1

REPORT INFORMATION
  Report Type: Report from Study
  Country: IT (occurrence: IT)
  Receive Date: 20140206
  Receipt Date: 20140326
  Transmission Date: 20141002
  Serious: Yes (Death)
  Sender: FDA-Public Use
  Company Number: IT-ROCHE-1344785

PATIENT
  Age: 3 Day
  Sex: Female

DRUGS (7)
  1. ALTEPLASE [Suspect]
     Indication: AORTIC THROMBOSIS
     Dosage: 0.5 MG/KG BOLUS, THEN CONTINUOUS INFUSION OF 0.3 MG/KG/H
     Route: 065
  2. ALTEPLASE [Suspect]
     Indication: PERIPHERAL ISCHAEMIA
  3. ROPIVACAINE [Suspect]
     Indication: PERIPHERAL ISCHAEMIA
     Dosage: 0.2%, 1 ML/KG
     Route: 005
  4. ROPIVACAINE [Suspect]
     Indication: NERVE BLOCK
  5. UNFRACTIONATED HEPARIN [Suspect]
     Indication: AORTIC THROMBOSIS
     Route: 065
  6. UNFRACTIONATED HEPARIN [Suspect]
     Indication: PERIPHERAL ISCHAEMIA
  7. FRESH FROZEN PLASMA [Concomitant]
     Indication: PERIPHERAL ISCHAEMIA

REACTIONS (1)
  - Renal failure [Fatal]
